FAERS Safety Report 11348488 (Version 3)
Quarter: 2015Q3

REPORT INFORMATION
  Report Type: Report from Study
  Country: US (occurrence: US)
  Receive Date: 20150806
  Receipt Date: 20150921
  Transmission Date: 20151125
  Serious: Yes (Hospitalization)
  Sender: FDA-Public Use
  Company Number: US-GILEAD-2015-0164842

PATIENT
  Age: 67 Year
  Sex: Male
  Weight: 87.5 kg

DRUGS (22)
  1. MULTIVITAMIN                       /00097801/ [Concomitant]
     Active Substance: VITAMINS
  2. DOCUSATE SODIUM. [Concomitant]
     Active Substance: DOCUSATE SODIUM
  3. ENOXAPARIN [Concomitant]
     Active Substance: ENOXAPARIN
  4. SENNA                              /00571901/ [Concomitant]
  5. SODIUM MONOPHOSPHATE [Concomitant]
  6. OFATUMUMAB [Suspect]
     Active Substance: OFATUMUMAB
     Indication: CHRONIC LYMPHOCYTIC LEUKAEMIA
     Dosage: 1000 MG, Q1MONTH
     Route: 042
     Dates: start: 20141230, end: 20150417
  7. FOSINOPRIL [Concomitant]
     Active Substance: FOSINOPRIL
  8. HYDROXYZINE [Concomitant]
     Active Substance: HYDROXYZINE\HYDROXYZINE HYDROCHLORIDE
  9. LANTUS [Concomitant]
     Active Substance: INSULIN GLARGINE
  10. IDELALISIB [Suspect]
     Active Substance: IDELALISIB
     Dosage: 150 MG, BID
     Route: 048
     Dates: start: 20150430, end: 20150625
  11. ACYCLOVIR                          /00587301/ [Concomitant]
     Active Substance: ACYCLOVIR
  12. ASPIRIN                            /00002701/ [Concomitant]
     Active Substance: ASPIRIN
  13. PNEUMO 23 VACCINE SERUM [Concomitant]
  14. GLIPIZIDE. [Concomitant]
     Active Substance: GLIPIZIDE
  15. POTASSIUM PHOSPHATE [Concomitant]
     Active Substance: POTASSIUM PHOSPHATE
  16. OXYCODONE [Concomitant]
     Active Substance: OXYCODONE
     Indication: INTERVERTEBRAL DISC DISORDER
  17. IDELALISIB [Suspect]
     Active Substance: IDELALISIB
     Indication: CHRONIC LYMPHOCYTIC LEUKAEMIA
     Dosage: 150 MG, BID
     Route: 048
     Dates: start: 20141106, end: 20150417
  18. OFATUMUMAB [Suspect]
     Active Substance: OFATUMUMAB
     Dosage: 1000 MG, Q1MONTH
     Route: 042
     Dates: start: 20150430, end: 20150625
  19. ATOVAQUONE. [Concomitant]
     Active Substance: ATOVAQUONE
  20. OMEPRAZOLE. [Concomitant]
     Active Substance: OMEPRAZOLE
  21. JANUMET [Concomitant]
     Active Substance: METFORMIN HYDROCHLORIDE\SITAGLIPTIN PHOSPHATE
  22. INSULIN ASPART [Concomitant]
     Active Substance: INSULIN ASPART

REACTIONS (2)
  - Pityriasis rubra pilaris [Recovered/Resolved]
  - Dermatitis exfoliative [Recovered/Resolved]

NARRATIVE: CASE EVENT DATE: 20150722
